FAERS Safety Report 25003529 (Version 1)
Quarter: 2025Q1

REPORT INFORMATION
  Report Type: Spontaneous
  Country: US (occurrence: None)
  Receive Date: 20250221
  Receipt Date: 20250221
  Transmission Date: 20250408
  Serious: Yes (Disabling)
  Sender: FDA-CTU
  Company Number: None

PATIENT
  Age: 78 Year
  Sex: Female
  Weight: 62.55 kg

DRUGS (1)
  1. FLUOROURACIL [Suspect]
     Active Substance: FLUOROURACIL
     Indication: Skin cancer
     Dosage: 1 PEA SIZE TWICE A DAY TOPICAL ?
     Route: 061
     Dates: start: 20250127, end: 20250221

REACTIONS (2)
  - Back pain [None]
  - Flank pain [None]

NARRATIVE: CASE EVENT DATE: 20250203
